FAERS Safety Report 14333345 (Version 1)
Quarter: 2017Q4

REPORT INFORMATION
  Report Type: Spontaneous
  Country: FR (occurrence: FR)
  Receive Date: 20171228
  Receipt Date: 20171228
  Transmission Date: 20180321
  Serious: Yes (Death, Hospitalization, Other)
  Sender: FDA-Public Use
  Company Number: FR-BRISTOL-MYERS SQUIBB COMPANY-BMS-2017-117323

PATIENT
  Age: 70 Year
  Sex: Male

DRUGS (15)
  1. ENDOXAN                            /00021101/ [Suspect]
     Active Substance: CYCLOPHOSPHAMIDE
     Indication: INTERSTITIAL LUNG DISEASE
     Dosage: 500 MG, TOTAL
     Route: 042
     Dates: start: 20171019, end: 20171019
  2. ALFUZOSINE /00975301/ [Suspect]
     Active Substance: ALFUZOSIN
     Indication: BENIGN PROSTATIC HYPERPLASIA
     Dosage: 10 MG, DAILY
     Route: 048
     Dates: end: 20171020
  3. ALPRAZOLAM. [Suspect]
     Active Substance: ALPRAZOLAM
     Indication: PRODUCT USED FOR UNKNOWN INDICATION
     Dosage: 0.75 MG, DAILY
     Route: 048
     Dates: end: 20171020
  4. VENTOLINE                          /00139501/ [Suspect]
     Active Substance: ALBUTEROL
     Indication: PRODUCT USED FOR UNKNOWN INDICATION
     Dosage: 3 DF, DAILY
     Route: 055
     Dates: end: 20171020
  5. ONDANSETRON ACCORD [Suspect]
     Active Substance: ONDANSETRON
     Indication: PREMEDICATION
     Dosage: 16 MG, DAILY
     Route: 042
     Dates: start: 20171019, end: 20171019
  6. LANTUS [Suspect]
     Active Substance: INSULIN GLARGINE
     Indication: KETOSIS-PRONE DIABETES MELLITUS
     Dosage: 16 IU, DAILY
     Route: 058
     Dates: end: 20171020
  7. BISOPROLOL FUMARATE. [Suspect]
     Active Substance: BISOPROLOL FUMARATE
     Indication: HYPERTENSION
     Dosage: 10 MG, DAILY
     Route: 048
     Dates: end: 20171020
  8. ELIQUIS [Suspect]
     Active Substance: APIXABAN
     Indication: CEREBROVASCULAR ACCIDENT PROPHYLAXIS
     Dosage: 10 MG, DAILY
     Route: 048
     Dates: start: 20171006, end: 20171020
  9. PREDNISOLONE. [Suspect]
     Active Substance: PREDNISOLONE
     Indication: HYPERTENSION
     Route: 048
  10. NOVORAPID [Suspect]
     Active Substance: INSULIN ASPART
     Indication: KETOSIS-PRONE DIABETES MELLITUS
     Route: 058
  11. DEROXAT [Suspect]
     Active Substance: PAROXETINE HYDROCHLORIDE
     Indication: PRODUCT USED FOR UNKNOWN INDICATION
     Route: 048
  12. BACTRIM [Suspect]
     Active Substance: SULFAMETHOXAZOLE\TRIMETHOPRIM
     Indication: PRODUCT USED FOR UNKNOWN INDICATION
     Dosage: 0.5 DF, DAILY
     Route: 048
     Dates: end: 20171020
  13. SKENAN [Suspect]
     Active Substance: MORPHINE SULFATE
     Indication: PAIN
     Dosage: 20 MG, DAILY
     Route: 048
     Dates: end: 20171020
  14. MESNA EG [Suspect]
     Active Substance: MESNA
     Indication: PREMEDICATION
     Dosage: 1188 MG, TOTAL
     Route: 042
     Dates: start: 20171019, end: 20171019
  15. PERINDOPRIL [Suspect]
     Active Substance: PERINDOPRIL
     Indication: HYPERTENSION
     Dosage: 2.5 DF, DAILY
     Route: 048
     Dates: end: 20171020

REACTIONS (1)
  - Cardio-respiratory arrest [Fatal]

NARRATIVE: CASE EVENT DATE: 20171020
